FAERS Safety Report 14311498 (Version 2)
Quarter: 2018Q1

REPORT INFORMATION
  Report Type: Spontaneous
  Country: US (occurrence: US)
  Receive Date: 20171221
  Receipt Date: 20180201
  Transmission Date: 20180509
  Serious: No
  Sender: FDA-Public Use
  Company Number: US-TRIS PHARMA, INC-2017TRISPO00543

PATIENT

DRUGS (4)
  1. DYANAVEL XR [Suspect]
     Active Substance: AMPHETAMINE
     Dosage: 3 ML, QD
     Route: 048
     Dates: end: 20171130
  2. DYANAVEL XR [Suspect]
     Active Substance: AMPHETAMINE
     Dosage: 5 ML, QD
     Route: 048
  3. DYANAVEL XR [Suspect]
     Active Substance: AMPHETAMINE
     Dosage: 3 ML, QD
     Route: 048
  4. DYANAVEL XR [Suspect]
     Active Substance: AMPHETAMINE
     Indication: ATTENTION DEFICIT/HYPERACTIVITY DISORDER
     Dosage: 3 ML, QD
     Route: 048

REACTIONS (3)
  - Incorrect dose administered [Unknown]
  - Pruritus [Recovered/Resolved]
  - Off label use [Unknown]

NARRATIVE: CASE EVENT DATE: 20171125
